FAERS Safety Report 8513325-5 (Version None)
Quarter: 2012Q3

REPORT INFORMATION
  Report Type: 
  Country: None (occurrence: None)
  Receive Date: 20120716
  Receipt Date: 20120710
  Transmission Date: 20120928
  Serious: Yes (Hospitalization)
  Sender: FDA-Public Use
  Company Number: PHEH2012US013676

PATIENT
  Sex: Female
  Weight: 106.12 kg

DRUGS (1)
  1. DIOVAN [Suspect]
     Dosage: 160 MG, ONCE DAILY

REACTIONS (1)
  - BREAST CANCER [None]
